FAERS Safety Report 13718375 (Version 4)
Quarter: 2018Q1

REPORT INFORMATION
  Report Type: Spontaneous
  Country: JP (occurrence: JP)
  Receive Date: 20170705
  Receipt Date: 20180212
  Transmission Date: 20180508
  Serious: Yes (Other)
  Sender: FDA-Public Use
  Company Number: JP-ASTRAZENECA-2017SE59799

PATIENT
  Sex: Female

DRUGS (3)
  1. AMLODIN [Concomitant]
     Active Substance: AMLODIPINE BESYLATE
     Route: 065
  2. CRESTOR [Concomitant]
     Active Substance: ROSUVASTATIN CALCIUM
     Dosage: 2.5MG UNKNOWN
     Route: 048
  3. TAGRISSO [Suspect]
     Active Substance: OSIMERTINIB
     Indication: NON-SMALL CELL LUNG CANCER
     Route: 048
     Dates: start: 201604

REACTIONS (9)
  - Hypoaesthesia [Unknown]
  - White blood cell count decreased [Unknown]
  - Peripheral artery aneurysm [Unknown]
  - Arthralgia [Unknown]
  - Platelet count decreased [Unknown]
  - Dizziness [Unknown]
  - Pain in extremity [Unknown]
  - Pain [Unknown]
  - Pulmonary thrombosis [Unknown]
